FAERS Safety Report 18365396 (Version 1)
Quarter: 2020Q4

REPORT INFORMATION
  Report Type: Spontaneous
  Country: US (occurrence: US)
  Receive Date: 20201009
  Receipt Date: 20201009
  Transmission Date: 20210114
  Serious: No
  Sender: FDA-Public Use
  Company Number: US-MYLANLABS-2020M1083711

PATIENT
  Sex: Male
  Weight: 53 kg

DRUGS (2)
  1. MIRTAZAPINE AUROBINDO [Concomitant]
     Active Substance: MIRTAZAPINE
     Dosage: 7.5 MILLIGRAM, QD, (TWO TABLETS AT BEDTIME)
  2. AZELASTINE, FLUTICASONE MYLAN [Suspect]
     Active Substance: AZELASTINE HYDROCHLORIDE\FLUTICASONE PROPIONATE
     Indication: SINUS CONGESTION
     Dosage: UNK, BID, (TWICE DAILY), (137/50 MICROGRAM)
     Route: 045

REACTIONS (4)
  - Device issue [Recovering/Resolving]
  - Wrong technique in product usage process [Not Recovered/Not Resolved]
  - Product quality issue [Recovering/Resolving]
  - Product dose omission issue [Not Recovered/Not Resolved]
